FAERS Safety Report 4721943-5 (Version None)
Quarter: 2005Q3

REPORT INFORMATION
  Report Type: 
  Country: None (occurrence: None)
  Receive Date: 20050722
  Receipt Date: 20041206
  Transmission Date: 20060218
  Serious: Yes (Hospitalization)
  Sender: FDA-Public Use
  Company Number: FR-BRISTOL-MYERS SQUIBB COMPANY-12784211

PATIENT
  Age: 43 Year
  Sex: Female

DRUGS (3)
  1. RISPERIDONE [Suspect]
     Indication: SCHIZOPHRENIA
     Route: 048
     Dates: start: 20041117, end: 20041101
  2. FLOXYFRAL [Concomitant]
     Dates: start: 20020607, end: 20041101
  3. ALPRAZOLAM (GEN) [Concomitant]
     Dates: start: 19990702

REACTIONS (4)
  - ABDOMINAL PAIN UPPER [None]
  - ANXIETY DISORDER [None]
  - ASTHENIA [None]
  - VOMITING [None]
